FAERS Safety Report 14916737 (Version 1)
Quarter: 2018Q2

REPORT INFORMATION
  Report Type: Spontaneous
  Country: US (occurrence: US)
  Receive Date: 20180520
  Receipt Date: 20180520
  Transmission Date: 20180711
  Serious: No
  Sender: FDA-Public Use
  Company Number: US-UNITED THERAPEUTICS-UNT-2018-006555

PATIENT
  Sex: Female
  Weight: 84.35 kg

DRUGS (4)
  1. REMODULIN [Suspect]
     Active Substance: TREPROSTINIL
     Indication: PULMONARY HYPERTENSION
     Dosage: 0.048 ?G/KG, CONTINUING
     Route: 041
     Dates: start: 20170825
  2. DIFLUCAN [Suspect]
     Active Substance: FLUCONAZOLE
     Indication: FUNGAL INFECTION
     Route: 065
  3. TRACLEER [Suspect]
     Active Substance: BOSENTAN
     Indication: PRODUCT USED FOR UNKNOWN INDICATION
     Route: 065
  4. OPSUMIT [Suspect]
     Active Substance: MACITENTAN
     Indication: PRODUCT USED FOR UNKNOWN INDICATION
     Dosage: UNK
     Route: 065
     Dates: start: 201804

REACTIONS (8)
  - Asthenia [Unknown]
  - Anaemia [Unknown]
  - Fungal infection [Unknown]
  - Joint swelling [Unknown]
  - Urinary tract infection [Unknown]
  - Drug interaction [Unknown]
  - Diet noncompliance [Unknown]
  - Peripheral swelling [Unknown]
